FAERS Safety Report 5355876-0 (Version None)
Quarter: 2007Q2

REPORT INFORMATION
  Report Type: 
  Country: None (occurrence: None)
  Receive Date: 20070530
  Receipt Date: 20070305
  Transmission Date: 20071010
  Serious: Yes (Hospitalization, Other)
  Sender: FDA-Public Use
  Company Number: US200610000103

PATIENT
  Age: 53 Year
  Sex: Female
  Weight: 108.8 kg

DRUGS (6)
  1. ZYPREXA [Suspect]
     Dosage: 20 MG
     Dates: start: 19960101, end: 20030101
  2. BUPROPION HCL [Concomitant]
  3. PAROXETINE [Concomitant]
  4. PROGESTIN (PROGESTERONE) [Concomitant]
  5. QUETIAPINE FUMARATE [Concomitant]
  6. RISPERIDONE [Concomitant]

REACTIONS (7)
  - BLOOD CHOLESTEROL INCREASED [None]
  - BLOOD TRIGLYCERIDES INCREASED [None]
  - DIABETES MELLITUS [None]
  - HYPERGLYCAEMIA [None]
  - HYPERTENSION [None]
  - METABOLIC DISORDER [None]
  - PANCREATITIS [None]
